FAERS Safety Report 20636132 (Version 1)
Quarter: 2022Q1

REPORT INFORMATION
  Report Type: Spontaneous
  Country: US (occurrence: None)
  Receive Date: 20220324
  Receipt Date: 20220324
  Transmission Date: 20220423
  Serious: Yes (Hospitalization)
  Sender: FDA-Public Use
  Company Number: None

PATIENT
  Age: 38 Year
  Sex: Male
  Weight: 112.5 kg

DRUGS (1)
  1. HERBALS\MITRAGYNINE [Suspect]
     Active Substance: HERBALS\MITRAGYNINE
     Indication: Anxiety
     Dates: start: 20180101, end: 20220324

REACTIONS (5)
  - Paranoia [None]
  - Delusion [None]
  - Self-medication [None]
  - Product complaint [None]
  - Marital problem [None]

NARRATIVE: CASE EVENT DATE: 20210731
